FAERS Safety Report 8408438 (Version 2)
Quarter: 2012Q4

REPORT INFORMATION
  Report Type: 
  Country: US (occurrence: US)
  Receive Date: 20120216
  Receipt Date: 20121026
  Transmission Date: 20130627
  Serious: Yes (Other)
  Sender: FDA-Public Use
  Company Number: US-US-EMD SERONO, INC.-7112316

PATIENT
  Sex: Female
  Weight: 55 kg

DRUGS (6)
  1. REBIF [Suspect]
     Indication: MULTIPLE SCLEROSIS
     Route: 058
     Dates: start: 20110817
  2. SERTRALINE [Concomitant]
     Indication: DEPRESSION
     Route: 048
     Dates: start: 20090929
  3. TOPAMAX [Concomitant]
     Indication: CONVULSION
     Route: 048
     Dates: start: 20100204
  4. TOPAMAX [Concomitant]
     Indication: HEADACHE
  5. GABAPENTIN [Concomitant]
     Indication: CONVULSION
     Route: 048
     Dates: start: 20090602
  6. XANAX [Concomitant]
     Indication: ANXIETY
     Dosage: at bedtime
     Route: 048
     Dates: start: 20090929

REACTIONS (1)
  - Psychogenic seizure [Recovering/Resolving]
